FAERS Safety Report 9808614 (Version 1)
Quarter: 2014Q1

REPORT INFORMATION
  Report Type: Spontaneous
  Country: US (occurrence: US)
  Receive Date: 20140110
  Receipt Date: 20140110
  Transmission Date: 20141002
  Serious: No
  Sender: FDA-Public Use
  Company Number: US-009507513-1401USA003397

PATIENT
  Sex: 0

DRUGS (1)
  1. A+D MEDICATED OINTMENT [Suspect]
     Indication: RASH
     Dosage: UNK, UNKNOWN
     Route: 061

REACTIONS (2)
  - Condition aggravated [Unknown]
  - Rash papular [Unknown]
